FAERS Safety Report 8310704-6 (Version None)
Quarter: 2012Q2

REPORT INFORMATION
  Report Type: 
  Country: None (occurrence: None)
  Receive Date: 20120425
  Receipt Date: 20120419
  Transmission Date: 20120825
  Serious: No
  Sender: FDA-Public Use
  Company Number: US-ROXANE LABORATORIES, INC.-2012-RO-00673RO

PATIENT
  Sex: Male

DRUGS (6)
  1. ZALEPLON [Suspect]
     Dosage: 20 MG
     Route: 048
     Dates: end: 20120215
  2. TEMAZEPAM [Concomitant]
  3. ZALEPLON [Suspect]
     Indication: SLEEP DISORDER
     Dosage: 10 MG
     Route: 048
     Dates: end: 20120215
  4. ACYCLOVIR [Concomitant]
  5. SEROQUEL [Concomitant]
  6. ZALEPLON [Suspect]
     Dosage: 30 MG
     Route: 048
     Dates: start: 20120417, end: 20120418

REACTIONS (2)
  - INTENTIONAL DRUG MISUSE [None]
  - DRUG INEFFECTIVE [None]
